FAERS Safety Report 15515501 (Version 3)
Quarter: 2018Q4

REPORT INFORMATION
  Report Type: Not Available
  Country: US (occurrence: US)
  Receive Date: 20181017
  Receipt Date: 20181210
  Transmission Date: 20190205
  Serious: No
  Sender: FDA-Public Use
  Company Number: US-NEUROCRINE BIOSCIENCES INC.-2018NBI02943

PATIENT
  Age: 55 Year
  Sex: Female
  Weight: 115.22 kg

DRUGS (24)
  1. MIRTAZAPINE. [Concomitant]
     Active Substance: MIRTAZAPINE
     Dosage: AT NIGHT
     Route: 048
  2. CA W VIT D [Concomitant]
  3. INGREZZA [Suspect]
     Active Substance: VALBENAZINE
     Indication: TARDIVE DYSKINESIA
     Dates: start: 20180212, end: 20180312
  4. METFORMIN [Concomitant]
     Active Substance: METFORMIN HYDROCHLORIDE
  5. GLIPIZIDE. [Concomitant]
     Active Substance: GLIPIZIDE
  6. JARDIANCE [Concomitant]
     Active Substance: EMPAGLIFLOZIN
  7. CETIRIZINE [Concomitant]
     Active Substance: CETIRIZINE HYDROCHLORIDE
  8. COQ10 [Concomitant]
     Active Substance: UBIDECARENONE
  9. PRAZOSIN. [Concomitant]
     Active Substance: PRAZOSIN
     Dosage: AT NIGHT
     Route: 048
  10. BISOPROLOL [Concomitant]
     Active Substance: BISOPROLOL
  11. NAPROXEN. [Concomitant]
     Active Substance: NAPROXEN
  12. FISH OIL [Concomitant]
     Active Substance: FISH OIL
  13. INGREZZA [Suspect]
     Active Substance: VALBENAZINE
     Dosage: IN THE MORNING
     Route: 048
     Dates: start: 20180312
  14. PROBIOTIC [Concomitant]
     Active Substance: PROBIOTICS NOS
  15. BUSPIRONE [Concomitant]
     Active Substance: BUSPIRONE HYDROCHLORIDE
     Dosage: AT NIGHT
  16. TRAMADOL. [Concomitant]
     Active Substance: TRAMADOL
  17. TIZANIDINE. [Concomitant]
     Active Substance: TIZANIDINE
  18. LOSARTAN. [Concomitant]
     Active Substance: LOSARTAN
  19. BENADRYL [Concomitant]
     Active Substance: DIPHENHYDRAMINE HYDROCHLORIDE
     Indication: TARDIVE DYSKINESIA
     Dosage: AS REQUIRED, JUST AT BEDTIME
  20. BACLOFEN. [Suspect]
     Active Substance: BACLOFEN
     Indication: MUSCLE SPASMS
  21. EFFEXOR XR [Concomitant]
     Active Substance: VENLAFAXINE HYDROCHLORIDE
  22. FENOFIBRATE. [Concomitant]
     Active Substance: FENOFIBRATE
  23. SINGULAIR [Concomitant]
     Active Substance: MONTELUKAST SODIUM
     Indication: ASTHMA
  24. LANSOPRAZOLE. [Concomitant]
     Active Substance: LANSOPRAZOLE

REACTIONS (5)
  - Dermatitis allergic [Recovering/Resolving]
  - Muscle spasms [Not Recovered/Not Resolved]
  - Drug effect decreased [None]
  - Mouth ulceration [Not Recovered/Not Resolved]
  - Nightmare [Recovering/Resolving]

NARRATIVE: CASE EVENT DATE: 201802
